FAERS Safety Report 11640049 (Version 2)
Quarter: 2016Q1

REPORT INFORMATION
  Report Type: Spontaneous
  Country: US (occurrence: US)
  Receive Date: 20151019
  Receipt Date: 20160204
  Transmission Date: 20160525
  Serious: Yes (Other)
  Sender: FDA-Public Use
  Company Number: US-PFIZER INC-2015347762

PATIENT
  Age: 64 Year
  Sex: Female
  Weight: 58 kg

DRUGS (4)
  1. ASPIRIN. [Concomitant]
     Active Substance: ASPIRIN
     Dosage: UNK
  2. TOPROL XL [Concomitant]
     Active Substance: METOPROLOL SUCCINATE
     Dosage: 50 MG, 4X/DAY
  3. TIKOSYN [Suspect]
     Active Substance: DOFETILIDE
     Indication: VENTRICULAR ARRHYTHMIA
     Dosage: 500 ?G, 2X/DAY
     Route: 048
     Dates: start: 201208, end: 201506
  4. TIKOSYN [Suspect]
     Active Substance: DOFETILIDE
     Dosage: 250 ?G, 2X/DAY
     Route: 048
     Dates: start: 20150605

REACTIONS (7)
  - Dizziness [Recovering/Resolving]
  - Nausea [Recovering/Resolving]
  - Chest discomfort [Not Recovered/Not Resolved]
  - Dyspnoea [Not Recovered/Not Resolved]
  - Palpitations [Not Recovered/Not Resolved]
  - Electrocardiogram QT prolonged [Unknown]
  - Atrial fibrillation [Not Recovered/Not Resolved]

NARRATIVE: CASE EVENT DATE: 201412
